FAERS Safety Report 9432386 (Version 1)
Quarter: 2013Q3

REPORT INFORMATION
  Report Type: Spontaneous
  Country: US (occurrence: US)
  Receive Date: 20130731
  Receipt Date: 20130731
  Transmission Date: 20140515
  Serious: Yes (Hospitalization)
  Sender: FDA-Public Use
  Company Number: US-ELI_LILLY_AND_COMPANY-US201306003188

PATIENT
  Age: 34 Year
  Sex: Female

DRUGS (14)
  1. ZYPREXA [Suspect]
     Indication: BIPOLAR DISORDER
     Dosage: 5 MG, QD
     Dates: start: 2010
  2. ZYPREXA [Suspect]
     Dosage: 7.5 MG, QD
  3. ZYPREXA [Suspect]
     Dosage: 10 MG, QD
  4. ZYPREXA [Suspect]
     Dosage: 2.5 MG, UNK
  5. ZYPREXA [Suspect]
     Dosage: 1.875 MG, UNK
  6. ZYPREXA [Suspect]
     Dosage: 1.5 MG, UNK
  7. TEGRETOL [Suspect]
     Indication: DEPRESSION
     Dosage: 800 MG, QD
  8. TEGRETOL [Suspect]
     Dosage: 300 MG, QD
  9. TEGRETOL [Suspect]
     Dosage: 500 MG, SINGLE
     Dates: end: 20130714
  10. TEGRETOL [Suspect]
     Dosage: 300 MG, QD
  11. FANAPT [Concomitant]
     Indication: BIPOLAR DISORDER
     Dosage: 1 MG, QD
     Dates: start: 201306
  12. FANAPT [Concomitant]
     Dosage: 4 MG, QD
  13. FANAPT [Concomitant]
     Dosage: 6 MG, QD
  14. LITHIUM [Concomitant]
     Indication: BIPOLAR DISORDER

REACTIONS (6)
  - Psychotic disorder [Not Recovered/Not Resolved]
  - Muscle twitching [Not Recovered/Not Resolved]
  - Blepharospasm [Not Recovered/Not Resolved]
  - Dyskinesia [Not Recovered/Not Resolved]
  - Drug ineffective [Unknown]
  - Wrong technique in drug usage process [Recovered/Resolved]
